FAERS Safety Report 7129214-7 (Version None)
Quarter: 2010Q4

REPORT INFORMATION
  Report Type: 
  Country: None (occurrence: None)
  Receive Date: 20101116
  Receipt Date: 20101101
  Transmission Date: 20110411
  Serious: Yes (Death)
  Sender: FDA-Public Use
  Company Number: HA10-273-AE

PATIENT
  Age: 60 Year
  Sex: Male
  Weight: 98 kg

DRUGS (5)
  1. NAPROXEN [Suspect]
     Indication: OSTEOARTHRITIS
     Dosage: ORAL
     Route: 048
     Dates: start: 20081203
  2. NAPROXEN [Suspect]
     Indication: RHEUMATOID ARTHRITIS
     Dosage: ORAL
     Route: 048
     Dates: start: 20081203
  3. CELCOXIB;IBUPROFEN/NAPROXEN;PLACEBO(CODE NOT BROKEN) [Suspect]
     Indication: OSTEOARTHRITIS
     Dosage: BLINDED; INFO. WITHHELD
  4. CELCOXIB;IBUPROFEN/NAPROXEN;PLACEBO(CODE NOT BROKEN) [Suspect]
     Indication: RHEUMATOID ARTHRITIS
     Dosage: BLINDED; INFO. WITHHELD
  5. NEXIUM [Concomitant]

REACTIONS (1)
  - DEATH [None]
